FAERS Safety Report 5512480-9 (Version None)
Quarter: 2007Q4

REPORT INFORMATION
  Report Type: 
  Country: None (occurrence: None)
  Receive Date: 20071112
  Receipt Date: 20070515
  Transmission Date: 20080405
  Serious: Yes (Other)
  Sender: FDA-Public Use
  Company Number: A0649082A

PATIENT
  Age: 46 Year
  Sex: Female

DRUGS (2)
  1. AVANDAMET [Suspect]
     Route: 048
     Dates: start: 20070326, end: 20070331
  2. NORVASC [Concomitant]
     Route: 048

REACTIONS (1)
  - RASH [None]
